FAERS Safety Report 4822559-2 (Version None)
Quarter: 2005Q4

REPORT INFORMATION
  Report Type: 
  Country: None (occurrence: None)
  Receive Date: 20051104
  Receipt Date: 20051104
  Transmission Date: 20060501
  Serious: Yes (Hospitalization, Other)
  Sender: FDA-Public Use
  Company Number: None

PATIENT
  Sex: Male
  Weight: 19.9 kg

DRUGS (7)
  1. VINCRISTINE [Suspect]
     Indication: PRECURSOR B-LYMPHOBLASTIC LYMPHOMA
     Dosage: SEE IMAGE
     Route: 042
     Dates: start: 20051006, end: 20051027
  2. DECADRON [Suspect]
     Dosage: SEE IMAGE
     Route: 048
     Dates: start: 20051006
  3. CYTARABINE [Suspect]
     Dosage: SEE IMAGE
     Route: 037
     Dates: start: 20051006, end: 20051006
  4. PEG-L-ASP [Suspect]
     Dosage: SEE IMAGE
     Dates: start: 20051009, end: 20051009
  5. PEG-L-ASP [Suspect]
     Dosage: SEE IMAGE
     Dates: start: 20051006
  6. METHOTREXATE [Suspect]
     Dosage: SEE IMAGE
     Dates: start: 20051013, end: 20051013
  7. METHOTREXATE [Suspect]
     Dosage: SEE IMAGE
     Dates: start: 20051006

REACTIONS (11)
  - BODY TEMPERATURE INCREASED [None]
  - BRAIN OEDEMA [None]
  - GAZE PALSY [None]
  - GRAND MAL CONVULSION [None]
  - HAEMORRHAGIC STROKE [None]
  - SEDATION [None]
  - SIMPLE PARTIAL SEIZURES [None]
  - STATUS EPILEPTICUS [None]
  - TACHYCARDIA [None]
  - TACHYPNOEA [None]
  - TINNITUS [None]
